FAERS Safety Report 4511671-3 (Version None)
Quarter: 2004Q4

REPORT INFORMATION
  Report Type: 
  Country: None (occurrence: None)
  Receive Date: 20041123
  Receipt Date: 20041123
  Transmission Date: 20050328
  Serious: Yes (Hospitalization)
  Sender: FDA-Public Use
  Company Number: None

PATIENT
  Age: 52 Year
  Sex: Female

DRUGS (7)
  1. CARBOPLATIN [Suspect]
     Indication: UTERINE CANCER
  2. MEGESTEROL [Concomitant]
  3. RISPERIDONE [Concomitant]
  4. FEXOFENIDINE [Concomitant]
  5. LOSARTAN [Concomitant]
  6. SERTRALINE HCL [Concomitant]
  7. WARFARIN SODIUM [Concomitant]

REACTIONS (4)
  - CONVULSION [None]
  - INCONTINENCE [None]
  - LOSS OF CONSCIOUSNESS [None]
  - POST PROCEDURAL VOMITING [None]
